FAERS Safety Report 11113362 (Version 1)
Quarter: 2015Q2

REPORT INFORMATION
  Report Type: Spontaneous
  Country: BR (occurrence: None)
  Receive Date: 20150512
  Receipt Date: 20150512
  Transmission Date: 20150821
  Serious: Yes (Hospitalization)
  Sender: FDA-Public Use
  Company Number: BR-TORRENT-00002916

PATIENT
  Age: 25 Year
  Sex: Male

DRUGS (4)
  1. DEPAKENE [Concomitant]
     Active Substance: VALPROIC ACID
  2. LAMITOR [Suspect]
     Active Substance: LAMOTRIGINE
     Indication: SEIZURE
     Route: 048
     Dates: start: 2013, end: 20150503
  3. FRISIUM [Concomitant]
     Active Substance: CLOBAZAM
  4. TEGRETOL [Concomitant]
     Active Substance: CARBAMAZEPINE

REACTIONS (4)
  - Blood glucose decreased [None]
  - Anaemia [None]
  - Respiratory tract inflammation [None]
  - Blood cholesterol increased [None]
